FAERS Safety Report 23760919 (Version 2)
Quarter: 2024Q2

REPORT INFORMATION
  Report Type: Spontaneous
  Country: US (occurrence: US)
  Receive Date: 20240419
  Receipt Date: 20240611
  Transmission Date: 20240716
  Serious: Yes (Hospitalization)
  Sender: FDA-Public Use
  Company Number: US-BRISTOL-MYERS SQUIBB COMPANY-2024-058210

PATIENT
  Age: 67 Year
  Sex: Female

DRUGS (2)
  1. REVLIMID [Suspect]
     Active Substance: LENALIDOMIDE
     Indication: Plasma cell myeloma
     Route: 048
  2. REVLIMID [Suspect]
     Active Substance: LENALIDOMIDE
     Dosage: QD X 14D 7D OFF

REACTIONS (7)
  - Erythema [Unknown]
  - Ear swelling [Unknown]
  - Off label use [Unknown]
  - Pruritus [Unknown]
  - Blister [Unknown]
  - Hypervolaemia [Unknown]
  - Back injury [Unknown]
